APPROVED DRUG PRODUCT: TOPICORT
Active Ingredient: DESOXIMETASONE
Strength: 0.05%
Dosage Form/Route: GEL;TOPICAL
Application: A074904 | Product #001 | TE Code: AB
Applicant: TARO PHARMACEUTICAL INDUSTRIES LTD
Approved: Jul 14, 1998 | RLD: No | RS: Yes | Type: RX